FAERS Safety Report 9537929 (Version 1)
Quarter: 2013Q3

REPORT INFORMATION
  Report Type: Spontaneous
  Country: US (occurrence: US)
  Receive Date: 20130919
  Receipt Date: 20130919
  Transmission Date: 20140515
  Serious: Yes (Other)
  Sender: FDA-Public Use
  Company Number: GXBR2013US001702

PATIENT
  Age: 82 Year
  Sex: Female

DRUGS (1)
  1. LORATADINE TABLETS USP [Suspect]
     Dosage: UNK MG, UNK

REACTIONS (1)
  - Glaucoma [Not Recovered/Not Resolved]
